FAERS Safety Report 9301366 (Version 1)
Quarter: 2013Q2

REPORT INFORMATION
  Report Type: Spontaneous
  Country: US (occurrence: US)
  Receive Date: 20130521
  Receipt Date: 20130521
  Transmission Date: 20140414
  Serious: No
  Sender: FDA-Public Use
  Company Number: US-009507513-1305USA012060

PATIENT
  Age: 38 Year
  Sex: Female

DRUGS (1)
  1. NASONEX [Suspect]
     Indication: HYPERSENSITIVITY
     Dosage: 1 DF, BID
     Route: 055
     Dates: start: 20130513

REACTIONS (2)
  - Headache [Recovered/Resolved]
  - Drug dose omission [Unknown]
